FAERS Safety Report 5123026-1 (Version None)
Quarter: 2006Q4

REPORT INFORMATION
  Report Type: 
  Country: None (occurrence: None)
  Receive Date: 20061009
  Receipt Date: 20061003
  Transmission Date: 20070319
  Serious: Yes (Hospitalization)
  Sender: FDA-Public Use
  Company Number: AU-ROCHE-465784

PATIENT
  Age: 64 Year
  Sex: Female

DRUGS (14)
  1. CEFTRIAXONE SODIUM [Suspect]
     Indication: DRUG USE FOR UNKNOWN INDICATION
     Route: 042
     Dates: start: 20060324, end: 20060326
  2. NILSTAT [Concomitant]
  3. PHYTOMENADIONE [Concomitant]
  4. ERGOCALCIFEROL [Concomitant]
  5. ALENDRONATE SODIUM [Concomitant]
  6. CHOLESTYRAMINE [Concomitant]
  7. SPIRONOLACTONE [Concomitant]
  8. FUROSEMIDE [Concomitant]
  9. RHINOCORT [Concomitant]
  10. NORFLOXACIN [Concomitant]
  11. OMEPRAZOLE [Concomitant]
  12. PIOGLITAZONE HCL [Concomitant]
  13. MIXTARD HUMAN 70/30 [Concomitant]
  14. LACTULOSE [Concomitant]

REACTIONS (3)
  - DERMATITIS BULLOUS [None]
  - MUCOSAL ULCERATION [None]
  - VAGINAL CANDIDIASIS [None]
